FAERS Safety Report 6849515-7 (Version None)
Quarter: 2010Q3

REPORT INFORMATION
  Report Type: 
  Country: None (occurrence: None)
  Receive Date: 20100716
  Receipt Date: 20071001
  Transmission Date: 20110219
  Serious: Yes (Hospitalization, Other)
  Sender: FDA-Public Use
  Company Number: US-PFIZER INC-2007082922

PATIENT
  Sex: Male
  Weight: 62.727 kg

DRUGS (8)
  1. CHANTIX [Suspect]
     Indication: TOBACCO ABUSE
     Dates: start: 20070101
  2. AMITRIPTYLINE HYDROCHLORIDE [Concomitant]
  3. PROTONIX [Concomitant]
  4. ACETYLSALICYLIC ACID [Concomitant]
  5. ALL OTHER THERAPEUTIC PRODUCTS [Concomitant]
  6. FERIDEX I.V. [Concomitant]
  7. DARVOCET [Concomitant]
     Indication: BACK DISORDER
  8. MULTI-VITAMINS [Concomitant]

REACTIONS (3)
  - ABNORMAL DREAMS [None]
  - SLEEP DISORDER [None]
  - TRANSIENT ISCHAEMIC ATTACK [None]
